FAERS Safety Report 9565657 (Version 4)
Quarter: 2013Q4

REPORT INFORMATION
  Report Type: Report from Study
  Country: US (occurrence: US)
  Receive Date: 20130930
  Receipt Date: 20131128
  Transmission Date: 20140711
  Serious: Yes (Other)
  Sender: FDA-Public Use
  Company Number: US-JNJFOC-20130913113

PATIENT
  Age: 62 Year
  Sex: Female
  Weight: 63.5 kg

DRUGS (16)
  1. SIMPONI [Suspect]
     Indication: PSORIATIC ARTHROPATHY
     Route: 058
     Dates: start: 20131001
  2. SIMPONI [Suspect]
     Indication: PSORIATIC ARTHROPATHY
     Dosage: START DATE: 2008 OR 2009
     Route: 058
     Dates: start: 2011, end: 20130815
  3. SYNTHROID [Concomitant]
     Indication: HYPOTHYROIDISM
     Route: 065
  4. CYTOMEL [Concomitant]
     Indication: HYPOTHYROIDISM
     Route: 065
  5. LIPITOR [Concomitant]
     Indication: BLOOD CHOLESTEROL INCREASED
     Route: 065
     Dates: start: 2003
  6. FLUTICASONE [Concomitant]
     Indication: SEASONAL ALLERGY
     Route: 045
  7. TESTIM [Concomitant]
     Indication: HORMONE REPLACEMENT THERAPY
     Route: 065
     Dates: start: 2010
  8. BABY ASPIRIN [Concomitant]
     Route: 065
  9. FISH OIL [Concomitant]
     Route: 065
  10. CALCIUM [Concomitant]
     Route: 065
  11. MULTIVITAMINS [Concomitant]
     Route: 065
  12. TRAVATAN [Concomitant]
     Indication: GLAUCOMA
     Dosage: EYE DROPS
     Route: 065
  13. COMBIGAN [Concomitant]
     Indication: GLAUCOMA
     Route: 065
  14. TAZORAC [Concomitant]
     Indication: PSORIASIS
     Route: 065
  15. ROGAINE [Concomitant]
     Indication: ALOPECIA
     Route: 065
  16. VAGIFEM [Concomitant]
     Indication: VULVOVAGINAL DRYNESS
     Route: 065

REACTIONS (4)
  - Glaucoma [Not Recovered/Not Resolved]
  - Diverticulitis [Recovered/Resolved]
  - Drug dose omission [Unknown]
  - Device malfunction [Unknown]
